FAERS Safety Report 21197941 (Version 3)
Quarter: 2022Q4

REPORT INFORMATION
  Report Type: Report from Study
  Country: AR (occurrence: AR)
  Receive Date: 20220810
  Receipt Date: 20221110
  Transmission Date: 20230113
  Serious: Yes (Death, Hospitalization, Other)
  Sender: FDA-Public Use
  Company Number: AR-ABBVIE-22K-007-4459054-00

PATIENT
  Age: 71 Year
  Sex: Female

DRUGS (1)
  1. HUMIRA [Suspect]
     Active Substance: ADALIMUMAB
     Indication: Rheumatoid arthritis
     Dosage: FORM STRENGTH: 40 MILLIGRAM
     Route: 058
     Dates: start: 20181210

REACTIONS (4)
  - Thyroid neoplasm [Not Recovered/Not Resolved]
  - Thermal burn [Not Recovered/Not Resolved]
  - Death [Fatal]
  - Obstructive airways disorder [Unknown]

NARRATIVE: CASE EVENT DATE: 20220629
